FAERS Safety Report 8368091-3 (Version None)
Quarter: 2012Q2

REPORT INFORMATION
  Report Type: 
  Country: None (occurrence: None)
  Receive Date: 20120516
  Receipt Date: 20120504
  Transmission Date: 20120825
  Serious: Yes (Hospitalization)
  Sender: FDA-Public Use
  Company Number: 2012ST000436

PATIENT
  Age: 11 Year
  Sex: Male

DRUGS (1)
  1. ADAGEN [Suspect]
     Indication: PRODUCT USED FOR UNKNOWN INDICATION
     Dosage: IM
     Route: 030

REACTIONS (3)
  - LUNG INFECTION PSEUDOMONAL [None]
  - SKIN PAPILLOMA [None]
  - THERAPEUTIC RESPONSE DECREASED [None]
